FAERS Safety Report 18015674 (Version 2)
Quarter: 2021Q2

REPORT INFORMATION
  Report Type: Spontaneous
  Country: CA (occurrence: CA)
  Receive Date: 20200713
  Receipt Date: 20210628
  Transmission Date: 20210717
  Serious: Yes (Other)
  Sender: FDA-Public Use
  Company Number: CA-TEVA-2020-CA-1799322

PATIENT
  Age: 55 Year
  Sex: Male

DRUGS (4)
  1. QUETIAPINE. [Suspect]
     Active Substance: QUETIAPINE
     Indication: SCHIZOPHRENIA
     Route: 065
  2. ABILIFY [Suspect]
     Active Substance: ARIPIPRAZOLE
     Indication: SCHIZOPHRENIA
     Route: 065
  3. RISPERDAL [Suspect]
     Active Substance: RISPERIDONE
     Indication: SCHIZOPHRENIA
     Route: 065
  4. HALOPERIDOL. [Suspect]
     Active Substance: HALOPERIDOL
     Indication: SCHIZOPHRENIA
     Route: 065

REACTIONS (12)
  - Akathisia [Unknown]
  - Psychosexual disorder [Unknown]
  - Sexual dysfunction [Unknown]
  - Suicide attempt [Unknown]
  - Delusion [Unknown]
  - Schizophrenia [Unknown]
  - Blood prolactin abnormal [Unknown]
  - Social avoidant behaviour [Unknown]
  - Extrapyramidal disorder [Unknown]
  - Hyperprolactinaemia [Unknown]
  - Emotional poverty [Unknown]
  - Drug ineffective [Unknown]
